FAERS Safety Report 12520920 (Version 1)
Quarter: 2016Q3

REPORT INFORMATION
  Report Type: Spontaneous
  Country: IN (occurrence: IN)
  Receive Date: 20160701
  Receipt Date: 20160701
  Transmission Date: 20161109
  Serious: No
  Sender: FDA-Public Use
  Company Number: IN-JNJFOC-20160626285

PATIENT
  Age: 30 Year
  Sex: Female

DRUGS (4)
  1. FENTANYL. [Suspect]
     Active Substance: FENTANYL
     Indication: ANALGESIC THERAPY
     Dosage: INJECTED VIA 26 G QUINCKE NEEDLE AT L3 ??AND L4 SPACE.
     Route: 037
  2. NORMAL SALINE [Concomitant]
     Active Substance: SODIUM CHLORIDE
     Route: 037
  3. BUPIVACAINE. [Suspect]
     Active Substance: BUPIVACAINE
     Indication: ANALGESIC THERAPY
     Dosage: 1 CC OF 0.25% PRESERVATIVE FREE BUPIVACAINE DOUBLE DILUTED WITH STERILE NORMAL SALINE.
     Route: 037
  4. BUPIVACAINE. [Suspect]
     Active Substance: BUPIVACAINE
     Indication: ANALGESIC THERAPY
     Dosage: FOR EPISIOTOMY SUTURING
     Route: 037

REACTIONS (4)
  - Aphonia [Recovered/Resolved]
  - Incorrect route of drug administration [Unknown]
  - Exposure during pregnancy [Recovered/Resolved]
  - Off label use [Unknown]
